FAERS Safety Report 18274923 (Version 5)
Quarter: 2021Q3

REPORT INFORMATION
  Report Type: Spontaneous
  Country: JP (occurrence: JP)
  Receive Date: 20200916
  Receipt Date: 20210707
  Transmission Date: 20211014
  Serious: Yes (Hospitalization, Other)
  Sender: FDA-Public Use
  Company Number: JP-PFIZER INC-2020171109

PATIENT
  Age: 76 Year
  Sex: Male

DRUGS (6)
  1. INLYTA [Suspect]
     Active Substance: AXITINIB
     Dosage: 4 MG, DAILY
     Dates: start: 2020, end: 20200817
  2. KEYTRUDA [Suspect]
     Active Substance: PEMBROLIZUMAB
     Indication: RENAL CELL CARCINOMA
     Dosage: 200 MG, CYCLIC (3?WEEK INTERVAL INTRAVENOUS INFUSION)
     Route: 042
     Dates: start: 20200414, end: 20200817
  3. INLYTA [Suspect]
     Active Substance: AXITINIB
     Indication: RENAL CELL CARCINOMA
     Dosage: 10 MG, DAILY
     Dates: start: 20200414, end: 2020
  4. BAVENCIO [Suspect]
     Active Substance: AVELUMAB
     Indication: RENAL CELL CARCINOMA
     Dosage: UNK (EVERY 2 WEEKS)
  5. INLYTA [Suspect]
     Active Substance: AXITINIB
     Dosage: 6 MG, DAILY
     Dates: start: 2020, end: 2020
  6. INLYTA [Suspect]
     Active Substance: AXITINIB
     Dosage: 2 MG, DAILY

REACTIONS (7)
  - Dysphonia [Recovering/Resolving]
  - Palmar-plantar erythrodysaesthesia syndrome [Recovering/Resolving]
  - Colitis [Recovering/Resolving]
  - Diarrhoea [Recovering/Resolving]
  - Neoplasm progression [Unknown]
  - Hypertension [Unknown]
  - Headache [Unknown]

NARRATIVE: CASE EVENT DATE: 2020
